FAERS Safety Report 4939187-0 (Version None)
Quarter: 2006Q1

REPORT INFORMATION
  Report Type: 
  Country: None (occurrence: None)
  Receive Date: 20060309
  Receipt Date: 20060309
  Transmission Date: 20060701
  Serious: Yes (Other)
  Sender: FDA-Public Use
  Company Number: None

PATIENT
  Sex: Male

DRUGS (3)
  1. LIDOCAINE [Suspect]
     Indication: SUNBURN
     Dosage: TOPICAL
     Route: 061
     Dates: start: 20050706, end: 20050706
  2. LEXAPRO [Concomitant]
  3. PROPECIA [Concomitant]

REACTIONS (10)
  - DELUSION [None]
  - DRUG HYPERSENSITIVITY [None]
  - DYSPHONIA [None]
  - DYSPNOEA [None]
  - HYPERVENTILATION [None]
  - OEDEMA PERIPHERAL [None]
  - PAIN [None]
  - SCRATCH [None]
  - SYNCOPE [None]
  - URTICARIA [None]
